FAERS Safety Report 5776661-1 (Version None)
Quarter: 2008Q2

REPORT INFORMATION
  Report Type: 
  Country: None (occurrence: None)
  Receive Date: 20080618
  Receipt Date: 20080208
  Transmission Date: 20081010
  Serious: No
  Sender: FDA-Public Use
  Company Number: US-ASTRAZENECA-2008UW02800

PATIENT
  Age: 32 Year
  Sex: Female

DRUGS (2)
  1. SYMBICORT [Suspect]
     Dosage: 160/4.5 MG
     Route: 055
  2. NEXIUM [Concomitant]
     Route: 048

REACTIONS (2)
  - FEELING JITTERY [None]
  - NERVOUSNESS [None]
